FAERS Safety Report 22281530 (Version 4)
Quarter: 2023Q4

REPORT INFORMATION
  Report Type: Report from Study
  Country: CA (occurrence: CA)
  Receive Date: 20230504
  Receipt Date: 20231024
  Transmission Date: 20240110
  Serious: Yes (Other)
  Sender: FDA-Public Use
  Company Number: CA-ABBVIE-4749833

PATIENT
  Age: 84 Year
  Sex: Male

DRUGS (3)
  1. HUMIRA [Suspect]
     Active Substance: ADALIMUMAB
     Indication: Colitis ulcerative
     Dosage: FORM STRENGTH WAS 40 MILLIGRAM
     Route: 058
     Dates: start: 20220908, end: 20230607
  2. HUMIRA [Suspect]
     Active Substance: ADALIMUMAB
     Dosage: FORM STRENGTH WAS 40 MILLIGRAM
     Route: 058
     Dates: start: 20230707
  3. HUMIRA [Suspect]
     Active Substance: ADALIMUMAB
     Dosage: FORM STRENGTH WAS 40 MILLIGRAM
     Route: 058
     Dates: start: 2023

REACTIONS (13)
  - Stoma creation [Unknown]
  - Abdominal operation [Unknown]
  - Haemorrhage [Unknown]
  - Colon cancer [Unknown]
  - Haemoglobin abnormal [Unknown]
  - Stenosis [Unknown]
  - Duodenal ulcer [Unknown]
  - Wound secretion [Unknown]
  - Melaena [Not Recovered/Not Resolved]
  - Colostomy [Unknown]
  - Colonic fistula [Unknown]
  - Diarrhoea [Unknown]
  - Helicobacter infection [Unknown]

NARRATIVE: CASE EVENT DATE: 20230628
